FAERS Safety Report 5393933-3 (Version None)
Quarter: 2007Q3

REPORT INFORMATION
  Report Type: 
  Country: None (occurrence: None)
  Receive Date: 20070723
  Receipt Date: 20061117
  Transmission Date: 20080115
  Serious: No
  Sender: FDA-Public Use
  Company Number: A0627837A

PATIENT
  Age: 76 Year
  Sex: Female

DRUGS (4)
  1. AVANDIA [Suspect]
     Dosage: 4MG TWICE PER DAY
     Route: 048
     Dates: start: 20060809, end: 20061101
  2. METFORMIN HCL [Concomitant]
  3. LISINOPRIL [Concomitant]
  4. GEMFIBROZIL [Concomitant]

REACTIONS (5)
  - ABDOMINAL PAIN UPPER [None]
  - DISORIENTATION [None]
  - DYSSTASIA [None]
  - GENERAL PHYSICAL HEALTH DETERIORATION [None]
  - INFLUENZA LIKE ILLNESS [None]
